FAERS Safety Report 17903367 (Version 1)
Quarter: 2020Q2

REPORT INFORMATION
  Report Type: Report from Study
  Country: US (occurrence: US)
  Receive Date: 20200617
  Receipt Date: 20200617
  Transmission Date: 20200714
  Serious: No
  Sender: FDA-Public Use
  Company Number: US-SAGE-2020SAGE000043

PATIENT

DRUGS (9)
  1. ZULRESSO [Suspect]
     Active Substance: BREXANOLONE
     Indication: PERINATAL DEPRESSION
     Dosage: 30 UG/KG PER HOUR
     Route: 042
     Dates: start: 20191204, end: 20191204
  2. ZULRESSO [Suspect]
     Active Substance: BREXANOLONE
     Dosage: 60 UG/KG PER HOUR
     Route: 042
     Dates: start: 20191204, end: 20191205
  3. ZULRESSO [Suspect]
     Active Substance: BREXANOLONE
     Dosage: 60 UG/KG PER HOUR
     Route: 042
     Dates: start: 20191206, end: 20191206
  4. ZULRESSO [Suspect]
     Active Substance: BREXANOLONE
     Dosage: 30 UG/KG PER HOUR
     Route: 042
     Dates: start: 20191206, end: 20191206
  5. XANAX [Concomitant]
     Active Substance: ALPRAZOLAM
     Indication: PRODUCT USED FOR UNKNOWN INDICATION
     Dosage: 0.25 MG ONE TABLET AS NEEDED
     Route: 048
     Dates: start: 20191204
  6. ZULRESSO [Suspect]
     Active Substance: BREXANOLONE
     Dosage: 60 UG/KG PER HOUR
     Route: 042
     Dates: start: 20191204, end: 20191204
  7. POTASSIUM CHLORIDE. [Concomitant]
     Active Substance: POTASSIUM CHLORIDE
     Dosage: 40MEQ, 1 TABLET
     Route: 048
     Dates: start: 20191204
  8. POTASSIUM CHLORIDE. [Concomitant]
     Active Substance: POTASSIUM CHLORIDE
     Indication: PRODUCT USED FOR UNKNOWN INDICATION
     Dosage: 20 MEQ, 1 TABLET
     Route: 048
     Dates: start: 20191204
  9. ZULRESSO [Suspect]
     Active Substance: BREXANOLONE
     Dosage: 90 UG/KG PER HOUR
     Route: 042
     Dates: start: 20191205, end: 20191206

REACTIONS (4)
  - Urinary incontinence [Unknown]
  - Product administration interrupted [Recovered/Resolved]
  - Headache [Recovered/Resolved]
  - Infusion site pain [Recovered/Resolved]

NARRATIVE: CASE EVENT DATE: 20191204
